FAERS Safety Report 7321716-3 (Version None)
Quarter: 2011Q1

REPORT INFORMATION
  Report Type: 
  Country: None (occurrence: None)
  Receive Date: 20110228
  Receipt Date: 20100705
  Transmission Date: 20110831
  Serious: Yes (Other)
  Sender: FDA-Public Use
  Company Number: US-PFIZER INC-2010063499

PATIENT
  Sex: Female

DRUGS (4)
  1. ABILIFY [Suspect]
     Dosage: UNK
  2. SEROQUEL [Concomitant]
     Dosage: UNK
  3. ZYPREXA [Suspect]
     Dosage: UNK
  4. GEODON [Suspect]
     Dosage: 40 MG, 2X/DAY
     Route: 048

REACTIONS (1)
  - ELECTROCARDIOGRAM QT PROLONGED [None]
